FAERS Safety Report 5895259-8 (Version None)
Quarter: 2008Q3

REPORT INFORMATION
  Report Type: 
  Country: None (occurrence: None)
  Receive Date: 20080924
  Receipt Date: 20080919
  Transmission Date: 20090109
  Serious: Yes (Other)
  Sender: FDA-Public Use
  Company Number: B0538447A

PATIENT
  Sex: Female

DRUGS (5)
  1. IMIGRAN [Suspect]
     Indication: MIGRAINE
     Dosage: 100MG PER DAY
     Route: 048
     Dates: start: 20000101
  2. OCTOSTIM [Concomitant]
     Route: 045
     Dates: start: 20000101
  3. DIAZEPAM [Concomitant]
     Dosage: 5MG TWICE PER DAY
     Route: 048
     Dates: start: 20000101
  4. CYPROTERONE ETHINYLESTRADIOL [Concomitant]
     Route: 048
     Dates: start: 20010101
  5. FLUTICASONE PROPIONATE [Concomitant]
     Route: 045

REACTIONS (3)
  - BLOOD PRESSURE INCREASED [None]
  - EPISTAXIS [None]
  - HAEMORRHAGE [None]
